FAERS Safety Report 5404790-0 (Version None)
Quarter: 2007Q3

REPORT INFORMATION
  Report Type: 
  Country: None (occurrence: None)
  Receive Date: 20070803
  Receipt Date: 20070725
  Transmission Date: 20080115
  Serious: Yes (Other)
  Sender: FDA-Public Use
  Company Number: PHEH2007US09061

PATIENT
  Age: 80 Year
  Sex: Female

DRUGS (1)
  1. GLEEVEC [Suspect]
     Indication: CHRONIC MYELOID LEUKAEMIA
     Dosage: 400 MG, QD
     Route: 048
     Dates: start: 20060101

REACTIONS (5)
  - AMAUROSIS FUGAX [None]
  - CAROTID ARTERY STENOSIS [None]
  - MIGRAINE [None]
  - ULTRASOUND DOPPLER [None]
  - VISUAL FIELD DEFECT [None]
